FAERS Safety Report 17386427 (Version 1)
Quarter: 2020Q1

REPORT INFORMATION
  Report Type: Spontaneous
  Country: ES (occurrence: ES)
  Receive Date: 20200206
  Receipt Date: 20200206
  Transmission Date: 20200409
  Serious: Yes (Hospitalization)
  Sender: FDA-Public Use
  Company Number: ES-PFIZER INC-2020051486

PATIENT
  Age: 57 Year
  Sex: Male

DRUGS (6)
  1. AMPICILINA SODICA [Interacting]
     Active Substance: AMPICILLIN SODIUM
     Indication: MENINGORADICULITIS
     Dosage: 3.5 G, 4X/DAY (EVERY 6 HOURS)
     Route: 042
     Dates: start: 20190429, end: 20190502
  2. CEFOTAXIMA [CEFOTAXIME] [Concomitant]
     Indication: MENINGORADICULITIS
     Dosage: 3.5 G, 4X/DAY (EVERY 6 HOURS)
     Route: 042
     Dates: start: 20190429, end: 20190503
  3. ACICLOVIR [Interacting]
     Active Substance: ACYCLOVIR
     Indication: MENINGORADICULITIS
     Dosage: 700 MG, 3X/DAY (EVERY 8 HOURS)
     Route: 042
     Dates: start: 20190429, end: 20190506
  4. DEXAMETASONA [DEXAMETHASONE] [Concomitant]
     Active Substance: DEXAMETHASONE
     Indication: SEIZURE
     Dosage: 12 MG, DAILY
     Route: 042
     Dates: start: 20190429, end: 20190506
  5. LEVETIRACETAM. [Suspect]
     Active Substance: LEVETIRACETAM
     Indication: SEIZURE
     Dosage: 1500 MG, 2X/DAY (EVERY 12 HOURS)
     Route: 042
     Dates: start: 20190429, end: 20190506
  6. LEVETIRACETAM. [Interacting]
     Active Substance: LEVETIRACETAM
     Dosage: UNK

REACTIONS (2)
  - Drug interaction [Recovered/Resolved]
  - Acute kidney injury [Recovered/Resolved]

NARRATIVE: CASE EVENT DATE: 20190506
